FAERS Safety Report 6219284-2 (Version None)
Quarter: 2009Q2

REPORT INFORMATION
  Report Type: 
  Country: None (occurrence: None)
  Receive Date: 20090609
  Receipt Date: 20090529
  Transmission Date: 20091009
  Serious: Yes (Hospitalization)
  Sender: FDA-Public Use
  Company Number: US-AMGEN-QUU349392

PATIENT
  Sex: Female

DRUGS (4)
  1. ENBREL [Suspect]
     Indication: RHEUMATOID ARTHRITIS
     Route: 058
     Dates: start: 20090410
  2. ARAVA [Concomitant]
     Route: 048
  3. SULFASALAZINE [Concomitant]
     Route: 048
  4. PLAQUENIL [Concomitant]
     Route: 048

REACTIONS (4)
  - FALL [None]
  - MONOPARESIS [None]
  - POST PROCEDURAL COMPLICATION [None]
  - UPPER LIMB FRACTURE [None]
